FAERS Safety Report 5278286-3 (Version None)
Quarter: 2007Q1

REPORT INFORMATION
  Report Type: 
  Country: None (occurrence: None)
  Receive Date: 20070322
  Receipt Date: 20070309
  Transmission Date: 20070707
  Serious: No
  Sender: FDA-Public Use
  Company Number: E2020-00648-SPO-IE

PATIENT
  Age: 86 Year
  Sex: Female

DRUGS (5)
  1. ARICEPT [Suspect]
     Indication: DEMENTIA
     Dosage: 5 MG, 1 IN 1 D, ORAL
     Route: 048
     Dates: start: 20061001
  2. ZIMOVANE (ZOPICLONE) [Concomitant]
  3. CITALOPRAM HYDROBROMIDE [Concomitant]
  4. DICLOFENAC SODIUM [Concomitant]
  5. SULPADEINE (PANADEINE CO) [Concomitant]

REACTIONS (6)
  - DIZZINESS [None]
  - HAEMOPTYSIS [None]
  - LABILE HYPERTENSION [None]
  - NAUSEA [None]
  - RECTAL HAEMORRHAGE [None]
  - VOMITING [None]
